FAERS Safety Report 8375577-4 (Version None)
Quarter: 2012Q1

REPORT INFORMATION
  Report Type: 
  Country: None (occurrence: None)
  Receive Date: 20120323
  Receipt Date: 20110811
  Transmission Date: 20120608
  Serious: Yes (Other)
  Sender: FDA-Public Use
  Company Number: 163-21880-11012606

PATIENT
  Age: 67 Year
  Sex: Female

DRUGS (4)
  1. WARFARIN SODIUM [Concomitant]
  2. DEXAMETHASONE [Concomitant]
  3. REVLIMID [Suspect]
     Indication: MULTIPLE MYELOMA
     Dosage: 25 MG, DAILY X 21 DAYS, PO, 5 MG, DAILY X 21 DAYS, PO
     Route: 048
     Dates: start: 20071117, end: 20101115
  4. REVLIMID [Suspect]
     Indication: MULTIPLE MYELOMA
     Dosage: 25 MG, DAILY X 21 DAYS, PO, 5 MG, DAILY X 21 DAYS, PO
     Route: 048
     Dates: start: 20101217, end: 20110517

REACTIONS (3)
  - RENAL FAILURE [None]
  - PARAESTHESIA [None]
  - PANCYTOPENIA [None]
